FAERS Safety Report 17266727 (Version 1)
Quarter: 2020Q1

REPORT INFORMATION
  Report Type: Spontaneous
  Country: NO (occurrence: NO)
  Receive Date: 20200114
  Receipt Date: 20200114
  Transmission Date: 20200409
  Serious: Yes (Other)
  Sender: FDA-Public Use
  Company Number: NO-JNJFOC-20200113678

PATIENT
  Sex: Female

DRUGS (3)
  1. TOPIMAX                            /00949801/ [Suspect]
     Active Substance: PREDNICARBATE
     Dosage: 75 MG, 1/DAY
     Route: 048
  2. TOPIMAX                            /00949801/ [Suspect]
     Active Substance: PREDNICARBATE
     Indication: MIGRAINE
     Route: 048
     Dates: start: 20160930, end: 2017
  3. TRAMADOL HYDROCHLORIDE. [Suspect]
     Active Substance: TRAMADOL HYDROCHLORIDE
     Indication: PRODUCT USED FOR UNKNOWN INDICATION
     Dosage: UNK
     Route: 065

REACTIONS (8)
  - Headache [Recovered/Resolved]
  - Tinnitus [Not Recovered/Not Resolved]
  - Palpitations [Unknown]
  - Hypoacusis [Not Recovered/Not Resolved]
  - Nausea [Unknown]
  - Paraesthesia [Recovered/Resolved]
  - Dizziness [Recovered/Resolved]
  - Memory impairment [Recovered/Resolved]

NARRATIVE: CASE EVENT DATE: 201611
